FAERS Safety Report 16476979 (Version 1)
Quarter: 2019Q2

REPORT INFORMATION
  Report Type: Spontaneous
  Country: US (occurrence: US)
  Receive Date: 20190626
  Receipt Date: 20190626
  Transmission Date: 20190711
  Serious: Yes (Hospitalization)
  Sender: FDA-Public Use
  Company Number: US-HORIZON-ACT-0175-2019

PATIENT
  Age: 12 Year
  Sex: Male

DRUGS (1)
  1. ACTIMMUNE [Suspect]
     Active Substance: INTERFERON GAMMA-1B
     Indication: CHRONIC GRANULOMATOUS DISEASE
     Dates: start: 201706, end: 201710

REACTIONS (4)
  - Therapy cessation [Not Recovered/Not Resolved]
  - Perirectal abscess [Recovered/Resolved]
  - Treatment noncompliance [Unknown]
  - Abscess drainage [Recovered/Resolved]

NARRATIVE: CASE EVENT DATE: 20190605
